FAERS Safety Report 6267312-0 (Version None)
Quarter: 2009Q3

REPORT INFORMATION
  Report Type: 
  Country: None (occurrence: None)
  Receive Date: 20090710
  Receipt Date: 20090701
  Transmission Date: 20100115
  Serious: Yes (Death)
  Sender: FDA-Public Use
  Company Number: 2008US003524

PATIENT
  Age: 83 Year
  Sex: Male

DRUGS (10)
  1. AMBISOME [Suspect]
     Indication: BRONCHOPULMONARY ASPERGILLOSIS
     Dosage: 125 MG, UID/QD
     Dates: start: 20081031, end: 20081204
  2. GANCICLOVIR [Concomitant]
  3. PREDONINE (PREDNISOLONE SODIUM SUCCINATE) [Concomitant]
  4. BENET (RISEDRONATE SODIUM) [Concomitant]
  5. FUROSEMIDE [Concomitant]
  6. RABEPRAZOLE SODIUM [Concomitant]
  7. TULOBUTEROL (TULOBUTEROL) [Concomitant]
  8. ISCOTIN (METHANIAZIDE SODIUM) [Concomitant]
  9. MEXIBAL BOEHRINGER (MEXILETINE HYDROCHLORIDE) [Concomitant]
  10. DAIPHEN (SULFAMETHOXAZOLE, TRIMETHOPRIM) [Concomitant]

REACTIONS (2)
  - DIALYSIS [None]
  - RENAL FAILURE [None]
